FAERS Safety Report 16987132 (Version 1)
Quarter: 2019Q4

REPORT INFORMATION
  Report Type: Spontaneous
  Country: US (occurrence: US)
  Receive Date: 20191102
  Receipt Date: 20191102
  Transmission Date: 20200122
  Serious: Yes (Life-Threatening, Other)
  Sender: FDA-Public Use
  Company Number: US-EMCURE PHARMACEUTICALS LTD-2019-EPL-0971

PATIENT
  Age: 56 Year
  Sex: Male

DRUGS (3)
  1. CYCLOPHOSPHAMIDE. [Interacting]
     Active Substance: CYCLOPHOSPHAMIDE
     Indication: PLASMA CELL MYELOMA
     Dosage: 300 MILLIGRAM/SQ. METER
     Route: 065
  2. BORTEZOMIB. [Interacting]
     Active Substance: BORTEZOMIB
     Indication: PLASMA CELL MYELOMA
     Dosage: 1.5 MILLIGRAM/SQ. METER
     Route: 065
  3. DEXAMETHASONE. [Suspect]
     Active Substance: DEXAMETHASONE
     Indication: PLASMA CELL MYELOMA
     Dosage: 40 MILLIGRAM
     Route: 065

REACTIONS (2)
  - Drug interaction [Unknown]
  - Venoocclusive liver disease [Unknown]
